FAERS Safety Report 23341709 (Version 1)
Quarter: 2023Q4

REPORT INFORMATION
  Report Type: Spontaneous
  Country: US (occurrence: US)
  Receive Date: 20231227
  Receipt Date: 20231227
  Transmission Date: 20240110
  Serious: Yes (Other)
  Sender: FDA-Public Use
  Company Number: US-ABBVIE-5560408

PATIENT
  Sex: Male

DRUGS (1)
  1. VENCLEXTA [Suspect]
     Active Substance: VENETOCLAX
     Indication: Chronic lymphocytic leukaemia recurrent
     Dosage: TIME INTERVAL: 0.33333333 DAYS: FORM STRENGTH: 100?ADMINISTER WITH A MEAL AND WATER AT APPROXIMAT...
     Route: 048

REACTIONS (1)
  - Hypertension [Unknown]
